FAERS Safety Report 18441216 (Version 3)
Quarter: 2021Q1

REPORT INFORMATION
  Report Type: Spontaneous
  Country: US (occurrence: US)
  Receive Date: 20201029
  Receipt Date: 20210105
  Transmission Date: 20210419
  Serious: No
  Sender: FDA-Public Use
  Company Number: US-PFIZER INC-2020353261

PATIENT
  Age: 61 Year
  Sex: Female

DRUGS (1)
  1. XELJANZ XR [Suspect]
     Active Substance: TOFACITINIB CITRATE
     Indication: RHEUMATOID ARTHRITIS
     Dosage: 11 MG, 1X/DAY
     Route: 048
     Dates: start: 2019

REACTIONS (7)
  - Arthralgia [Unknown]
  - Back injury [Recovering/Resolving]
  - Dyspnoea [Unknown]
  - Exposure to SARS-CoV-2 [Unknown]
  - Chest pain [Unknown]
  - Panic attack [Unknown]
  - Product dose omission issue [Unknown]
